FAERS Safety Report 23640396 (Version 1)
Quarter: 2024Q1

REPORT INFORMATION
  Report Type: Spontaneous
  Country: SI (occurrence: SI)
  Receive Date: 20240317
  Receipt Date: 20240317
  Transmission Date: 20240410
  Serious: Yes (Other)
  Sender: FDA-Public Use
  Company Number: SI-JNJFOC-20240341649

PATIENT
  Age: 70 Year
  Sex: Male

DRUGS (1)
  1. UPTRAVI [Suspect]
     Active Substance: SELEXIPAG
     Indication: Product used for unknown indication
     Dosage: 2-200 UG
     Route: 048

REACTIONS (3)
  - Right ventricular failure [Unknown]
  - Diarrhoea [Recovered/Resolved]
  - Headache [Unknown]
